FAERS Safety Report 5193076-8 (Version None)
Quarter: 2006Q4

REPORT INFORMATION
  Report Type: 
  Country: None (occurrence: None)
  Receive Date: 20061228
  Receipt Date: 20060410
  Transmission Date: 20070319
  Serious: No
  Sender: FDA-Public Use
  Company Number: US-GLAXOSMITHKLINE-A0601140A

PATIENT
  Sex: Male

DRUGS (9)
  1. AVODART [Suspect]
     Indication: BENIGN PROSTATIC HYPERPLASIA
     Dosage: .5MG PER DAY
     Route: 048
     Dates: start: 20060301, end: 20060404
  2. FLOMAX [Concomitant]
  3. NORVASC [Concomitant]
  4. COLCHICINE [Concomitant]
  5. LIPITOR [Concomitant]
  6. SYNTHROID [Concomitant]
  7. ACCUPRIL [Concomitant]
  8. TOPROL-XL [Concomitant]
  9. SAW PALMETTO [Concomitant]

REACTIONS (3)
  - ABDOMINAL PAIN UPPER [None]
  - BLADDER DISCOMFORT [None]
  - DYSURIA [None]
